FAERS Safety Report 11373025 (Version 1)
Quarter: 2015Q3

REPORT INFORMATION
  Report Type: Spontaneous
  Country: US (occurrence: US)
  Receive Date: 20150811
  Receipt Date: 20150811
  Transmission Date: 20151125
  Serious: No
  Sender: FDA-Public Use
  Company Number: US-ELI_LILLY_AND_COMPANY-US201204006685

PATIENT
  Age: 61 Year
  Sex: Male

DRUGS (3)
  1. NORVASC [Concomitant]
     Active Substance: AMLODIPINE BESYLATE
  2. VITAMINS [Concomitant]
     Active Substance: VITAMINS
  3. CIALIS [Suspect]
     Active Substance: TADALAFIL
     Indication: ERECTILE DYSFUNCTION
     Dosage: 5 MG, QD
     Dates: start: 201203

REACTIONS (2)
  - Deafness [Recovered/Resolved]
  - Eye infection [Not Recovered/Not Resolved]
